FAERS Safety Report 7078199-0 (Version None)
Quarter: 2010Q4

REPORT INFORMATION
  Report Type: 
  Country: None (occurrence: None)
  Receive Date: 20101101
  Receipt Date: 20101101
  Transmission Date: 20110411
  Serious: No
  Sender: FDA-Public Use
  Company Number: None

PATIENT
  Age: 39 Year
  Sex: Female
  Weight: 107.3 kg

DRUGS (2)
  1. VELCADE [Suspect]
     Indication: MULTIPLE MYELOMA
     Dosage: VELCADE 2.7MG Q WEEK IV
     Route: 042
  2. REVLIMID [Suspect]
     Dosage: REVLIMID 25MG QD PO
     Route: 048

REACTIONS (1)
  - SCLERAL HYPERAEMIA [None]
